FAERS Safety Report 5745260-X (Version None)
Quarter: 2008Q2

REPORT INFORMATION
  Report Type: 
  Country: None (occurrence: None)
  Receive Date: 20080521
  Receipt Date: 20080515
  Transmission Date: 20081010
  Serious: Yes (Death, Hospitalization)
  Sender: FDA-Public Use
  Company Number: JP-JNJFOC-20080406165

PATIENT
  Sex: Female

DRUGS (1)
  1. FINIBAX [Suspect]
     Indication: PNEUMONIA
     Route: 041

REACTIONS (2)
  - HEPATIC ENZYME INCREASED [None]
  - RESPIRATORY FAILURE [None]
